FAERS Safety Report 15789817 (Version 2)
Quarter: 2019Q1

REPORT INFORMATION
  Report Type: Spontaneous
  Country: US (occurrence: US)
  Receive Date: 20190104
  Receipt Date: 20190108
  Transmission Date: 20190417
  Serious: Yes (Other)
  Sender: FDA-Public Use
  Company Number: US-PFIZER INC-2019000575

PATIENT
  Age: 81 Year
  Sex: Male

DRUGS (4)
  1. AZITHROMYCIN ANHYDROUS. [Concomitant]
     Active Substance: AZITHROMYCIN ANHYDROUS
     Indication: BACTERIAL INFECTION
     Dosage: 500 MG, DAILY
     Route: 048
  2. AMIKACIN SULFATE. [Suspect]
     Active Substance: AMIKACIN SULFATE
     Indication: BACTERIAL INFECTION
     Dosage: 600 MG, UNK (EVERY 48-72 H DOSED AFTER DIALYSIS)
     Route: 042
  3. TIGECYCLINE. [Concomitant]
     Active Substance: TIGECYCLINE
     Indication: BACTERIAL INFECTION
     Dosage: 50 MG, 1X/DAY
     Route: 042
  4. ACETYLCYSTEINE. [Concomitant]
     Active Substance: ACETYLCYSTEINE
     Indication: BACTERIAL INFECTION
     Dosage: UNK

REACTIONS (3)
  - Hyperkalaemia [Recovered/Resolved]
  - Renal injury [Recovered/Resolved]
  - Metabolic acidosis [Recovered/Resolved]
